FAERS Safety Report 6714907-3 (Version None)
Quarter: 2010Q2

REPORT INFORMATION
  Report Type: 
  Country: None (occurrence: None)
  Receive Date: 20100507
  Receipt Date: 20100504
  Transmission Date: 20101027
  Serious: No
  Sender: FDA-Public Use
  Company Number: BR-ASTRAZENECA-2010SE20351

PATIENT
  Age: 45 Year
  Sex: Female

DRUGS (2)
  1. SEROQUEL [Suspect]
     Indication: BIPOLAR DISORDER
     Route: 048
     Dates: start: 20081201
  2. TRILEPTAL [Concomitant]
     Indication: BIPOLAR DISORDER

REACTIONS (1)
  - PLATELET COUNT INCREASED [None]
